FAERS Safety Report 15711355 (Version 2)
Quarter: 2019Q1

REPORT INFORMATION
  Report Type: Spontaneous
  Country: PT (occurrence: PT)
  Receive Date: 20181211
  Receipt Date: 20190222
  Transmission Date: 20190417
  Serious: Yes (Disabling, Other)
  Sender: FDA-Public Use
  Company Number: PT-ALLERGAN-1856651US

PATIENT
  Age: 80 Year
  Sex: Female
  Weight: 63 kg

DRUGS (8)
  1. MOLINAR [Concomitant]
     Indication: VITAMIN D DECREASED
     Dosage: 1 DF, Q MONTH
     Route: 048
  2. MEMANTINE HCL - BP [Suspect]
     Active Substance: MEMANTINE
     Indication: MENTAL DISORDER
     Dosage: 20 MG, QD
     Route: 048
     Dates: start: 20181028
  3. SEDOXIL [Concomitant]
     Active Substance: MEXAZOLAM
     Indication: ANXIETY
     Dosage: 1 DF, QD
     Route: 048
  4. LANSOPRAZOLE. [Concomitant]
     Active Substance: LANSOPRAZOLE
     Indication: PROPHYLAXIS AGAINST GASTROINTESTINAL ULCER
     Dosage: 30 MG, QD
     Route: 048
  5. SERTRALINE [Concomitant]
     Active Substance: SERTRALINE HYDROCHLORIDE
     Indication: DEPRESSION
     Dosage: 50 MG, QD
     Route: 048
     Dates: start: 20171220
  6. BETMIGA [Concomitant]
     Active Substance: MIRABEGRON
     Indication: URINARY INCONTINENCE
     Dosage: 50 MG, QD
     Route: 048
  7. RIVOTRIL [Concomitant]
     Active Substance: CLONAZEPAM
     Dosage: 1 MG, QD
     Route: 048
  8. VICTAN [Concomitant]
     Active Substance: ETHYL LOFLAZEPATE
     Indication: ANXIETY
     Dosage: 2 MG, QD
     Route: 048
     Dates: start: 20181026

REACTIONS (7)
  - Anxiety [Recovering/Resolving]
  - Nausea [Recovering/Resolving]
  - Hyperacusis [Recovering/Resolving]
  - Product use in unapproved indication [Unknown]
  - Photophobia [Recovering/Resolving]
  - Headache [Recovering/Resolving]
  - Fatigue [Recovering/Resolving]

NARRATIVE: CASE EVENT DATE: 201811
